FAERS Safety Report 8606794 (Version 2)
Quarter: 2013Q3

REPORT INFORMATION
  Report Type: Spontaneous
  Country: US (occurrence: US)
  Receive Date: 20120611
  Receipt Date: 20130724
  Transmission Date: 20140515
  Serious: Yes (Disabling)
  Sender: FDA-Public Use
  Company Number: US-ASTRAZENECA-2012SE35481

PATIENT
  Age: 53 Year
  Sex: Male

DRUGS (3)
  1. NEXIUM [Suspect]
     Route: 048
  2. TUMS [Concomitant]
     Dosage: ONCE
     Dates: start: 2010
  3. MILK MAGNESIA [Concomitant]
     Dosage: TWICE
     Dates: start: 201304

REACTIONS (3)
  - Lower limb fracture [Unknown]
  - Osteoporosis [Unknown]
  - Ankle fracture [Unknown]
